FAERS Safety Report 8680083 (Version 2)
Quarter: 2013Q1

REPORT INFORMATION
  Report Type: Report from Study
  Country: FR (occurrence: FR)
  Receive Date: 20120724
  Receipt Date: 20130122
  Transmission Date: 20140127
  Serious: Yes (Death, Hospitalization)
  Sender: FDA-Public Use
  Company Number: FR-ROCHE-1078040

PATIENT
  Sex: Male
  Weight: 62 kg

DRUGS (2)
  1. BEVACIZUMAB [Suspect]
     Indication: ANGIOSARCOMA METASTATIC
     Dosage: LAST DOSE ADMINISTERED : 640 MG
     Route: 042
     Dates: start: 20120515, end: 20120619
  2. PACLITAXEL [Suspect]
     Indication: ANGIOSARCOMA METASTATIC
     Dosage: LAST DOSE ADMINISTERED: 137 MG
     Route: 042
     Dates: start: 20120515, end: 20120619

REACTIONS (3)
  - Faecal vomiting [Fatal]
  - Abdominal pain [Recovered/Resolved]
  - Febrile neutropenia [Unknown]
